FAERS Safety Report 15147146 (Version 1)
Quarter: 2018Q3

REPORT INFORMATION
  Report Type: Spontaneous
  Country: US (occurrence: US)
  Receive Date: 20180618
  Receipt Date: 20180618
  Transmission Date: 20181010
  Serious: No
  Sender: FDA-Public Use
  Company Number: None

PATIENT
  Age: 36 Year
  Sex: Female

DRUGS (1)
  1. HUMIRA [Suspect]
     Active Substance: ADALIMUMAB
     Indication: RHEUMATOID ARTHRITIS
     Route: 058
     Dates: start: 20171128, end: 20180306

REACTIONS (4)
  - Injection site reaction [None]
  - Asthenia [None]
  - Weight increased [None]
  - Mood swings [None]

NARRATIVE: CASE EVENT DATE: 20180101
